FAERS Safety Report 4742070-7 (Version None)
Quarter: 2005Q3

REPORT INFORMATION
  Report Type: 
  Country: None (occurrence: None)
  Receive Date: 20050810
  Receipt Date: 20050810
  Transmission Date: 20060218
  Serious: Yes (Hospitalization)
  Sender: FDA-Public Use
  Company Number: None

PATIENT
  Age: 79 Year
  Sex: Male
  Weight: 69.9 kg

DRUGS (2)
  1. ZOSYN [Suspect]
     Dosage: 2.25 G
     Dates: start: 20050511, end: 20050525
  2. ENOXAPARIN SODIUM [Suspect]
     Dosage: 30 MG Q 12 H
     Dates: start: 20050415, end: 20050525

REACTIONS (3)
  - NEPHRITIS INTERSTITIAL [None]
  - RENAL FAILURE ACUTE [None]
  - THROMBOCYTOPENIA [None]
